FAERS Safety Report 13416055 (Version 3)
Quarter: 2017Q2

REPORT INFORMATION
  Report Type: Report from Study
  Country: JP (occurrence: JP)
  Receive Date: 20170407
  Receipt Date: 20170427
  Transmission Date: 20170830
  Serious: Yes (Hospitalization)
  Sender: FDA-Public Use
  Company Number: PHJP2017JP011052

PATIENT
  Age: 6 Year
  Sex: Male

DRUGS (19)
  1. CERTICAN [Suspect]
     Active Substance: EVEROLIMUS
     Dosage: 1.25 MG, QD
     Route: 048
     Dates: start: 20130126, end: 20130205
  2. CERTICAN [Suspect]
     Active Substance: EVEROLIMUS
     Dosage: 1 MG, QD
     Route: 048
     Dates: start: 20150403, end: 20150407
  3. CERTICAN [Suspect]
     Active Substance: EVEROLIMUS
     Dosage: 1.25 MG, QD
     Route: 048
     Dates: start: 20140419, end: 20140922
  4. CERTICAN [Suspect]
     Active Substance: EVEROLIMUS
     Dosage: 0.5 MG, QD
     Route: 048
     Dates: start: 20150408, end: 20150410
  5. CERTICAN [Suspect]
     Active Substance: EVEROLIMUS
     Dosage: 0.875 MG, QD
     Route: 048
     Dates: start: 20150422, end: 20150428
  6. CERTICAN [Suspect]
     Active Substance: EVEROLIMUS
     Indication: HEART TRANSPLANT
     Dosage: 1 MG, QD
     Route: 048
     Dates: start: 20121219, end: 20130125
  7. CERTICAN [Suspect]
     Active Substance: EVEROLIMUS
     Dosage: 1.125 MG, QD
     Route: 048
     Dates: start: 20140928, end: 20141216
  8. BIOFERMIN [Concomitant]
     Active Substance: BACILLUS SUBTILIS\LACTOBACILLUS ACIDOPHILUS\STREPTOCOCCUS FAECAIS
     Indication: PROPHYLAXIS
     Dosage: 3 DF, UNK
     Route: 048
     Dates: start: 20140225, end: 20141110
  9. CERTICAN [Suspect]
     Active Substance: EVEROLIMUS
     Dosage: 1 MG, QD
     Route: 048
     Dates: start: 20150429, end: 20150602
  10. CERTICAN [Suspect]
     Active Substance: EVEROLIMUS
     Dosage: 1.5 MG, QD
     Route: 048
     Dates: start: 20131219, end: 20140418
  11. CERTICAN [Suspect]
     Active Substance: EVEROLIMUS
     Dosage: 1.125 MG, QD
     Route: 048
     Dates: start: 20150602
  12. CERTICAN [Suspect]
     Active Substance: EVEROLIMUS
     Dosage: 0.75 MG, QD
     Route: 048
     Dates: start: 20141217, end: 20150124
  13. BIOSMIN [Concomitant]
     Indication: PROPHYLAXIS
     Dosage: 1.8 G, UNK
     Route: 048
     Dates: start: 20151011
  14. CERTICAN [Suspect]
     Active Substance: EVEROLIMUS
     Dosage: 1 MG, QD
     Route: 048
     Dates: start: 20130206
  15. CERTICAN [Suspect]
     Active Substance: EVEROLIMUS
     Dosage: 1 MG, QD
     Route: 048
     Dates: start: 20140923, end: 20140927
  16. CERTICAN [Suspect]
     Active Substance: EVEROLIMUS
     Dosage: 0.875 MG, QD
     Route: 048
     Dates: start: 20150125, end: 20150402
  17. CERTICAN [Suspect]
     Active Substance: EVEROLIMUS
     Dosage: 0.625 MG, QD
     Route: 048
     Dates: start: 20150411, end: 20150421
  18. ZOSYN [Suspect]
     Active Substance: PIPERACILLIN SODIUM\TAZOBACTAM SODIUM
     Indication: PNEUMONIA
     Dosage: 1.9 G, TID
     Route: 042
     Dates: start: 20151006, end: 20151010
  19. MIYA-BM [Concomitant]
     Active Substance: CLOSTRIDIUM BUTYRICUM SPORES STRAIN M-55
     Indication: PROPHYLAXIS
     Dosage: 0.5 G, UNK
     Route: 048
     Dates: start: 20141111, end: 20151010

REACTIONS (17)
  - Viral upper respiratory tract infection [Recovered/Resolved]
  - Diarrhoea [Recovering/Resolving]
  - Pyrexia [Unknown]
  - Enterocolitis viral [Recovered/Resolved]
  - Weight decreased [Not Recovered/Not Resolved]
  - Electrolyte imbalance [Recovered/Resolved]
  - Pneumonia [Recovered/Resolved]
  - Pneumonia [Recovered/Resolved]
  - Pyrexia [Unknown]
  - Monocyte count increased [Unknown]
  - Pneumonia [Recovered/Resolved]
  - Pyrexia [Unknown]
  - Decreased appetite [Unknown]
  - White blood cell count decreased [Recovered/Resolved]
  - Pyrexia [Unknown]
  - Dehydration [Recovered/Resolved]
  - Differential white blood cell count abnormal [Unknown]

NARRATIVE: CASE EVENT DATE: 20140324
